FAERS Safety Report 18744101 (Version 2)
Quarter: 2025Q4

REPORT INFORMATION
  Report Type: Spontaneous
  Country: US (occurrence: US)
  Receive Date: 20210115
  Receipt Date: 20251222
  Transmission Date: 20260118
  Serious: No
  Sender: JOHNSON AND JOHNSON
  Company Number: US-JNJFOC-20210120531

PATIENT
  Sex: Male

DRUGS (12)
  1. RISPERIDONE [Suspect]
     Active Substance: RISPERIDONE
     Indication: Product used for unknown indication
  2. RISPERIDONE [Suspect]
     Active Substance: RISPERIDONE
  3. RISPERIDONE [Suspect]
     Active Substance: RISPERIDONE
  4. RISPERIDONE [Suspect]
     Active Substance: RISPERIDONE
  5. RISPERIDONE [Suspect]
     Active Substance: RISPERIDONE
  6. RISPERIDONE [Suspect]
     Active Substance: RISPERIDONE
  7. RISPERDAL [Suspect]
     Active Substance: RISPERIDONE
     Indication: Product used for unknown indication
  8. RISPERDAL [Suspect]
     Active Substance: RISPERIDONE
  9. RISPERDAL [Suspect]
     Active Substance: RISPERIDONE
  10. RISPERDAL [Suspect]
     Active Substance: RISPERIDONE
  11. RISPERDAL [Suspect]
     Active Substance: RISPERIDONE
  12. RISPERDAL [Suspect]
     Active Substance: RISPERIDONE

REACTIONS (2)
  - Emotional disorder [Unknown]
  - Gynaecomastia [Unknown]
